FAERS Safety Report 9971764 (Version 1)
Quarter: 2014Q1

REPORT INFORMATION
  Report Type: Spontaneous
  Country: US (occurrence: None)
  Receive Date: 20140127
  Receipt Date: 20140127
  Transmission Date: 20141002
  Serious: Yes (Hospitalization)
  Sender: FDA-Public Use
  Company Number: 1242023

PATIENT
  Age: 63 Year
  Sex: Female

DRUGS (10)
  1. RITUXIMAB (RITUXIMAB) [Suspect]
     Indication: AUTOIMMUNE HAEMOLYTIC ANAEMIA
     Route: 042
     Dates: start: 2009
  2. RITUXIMAB (RITUXIMAB) [Suspect]
     Indication: IMMUNE THROMBOCYTOPENIC PURPURA
     Route: 042
     Dates: start: 2009
  3. ADRIAMYCIN (DOXORUBICIN) [Concomitant]
  4. FASLODEX (FULVESTRANT) [Concomitant]
  5. VITAMIN B COMPLEX (VITAMIN B COMPLEX) [Concomitant]
  6. PREDNISONE (PREDNISONE) [Concomitant]
  7. FOLIC ACID (FOLIC ACID) [Concomitant]
  8. FEMARA (LETROZOLE) [Concomitant]
  9. AROMASIN (EXEMESTANE) [Concomitant]
  10. XELODA (CAPECITABINE) (TABLET) [Concomitant]

REACTIONS (6)
  - Haemoglobin decreased [None]
  - Platelet count decreased [None]
  - Clostridium difficile infection [None]
  - Septic shock [None]
  - Tumour marker increased [None]
  - White blood cell count decreased [None]
